FAERS Safety Report 21651563 (Version 1)
Quarter: 2022Q4

REPORT INFORMATION
  Report Type: Spontaneous
  Country: US (occurrence: None)
  Receive Date: 20221123
  Receipt Date: 20221123
  Transmission Date: 20230112
  Serious: Yes (Hospitalization)
  Sender: FDA-Public Use
  Company Number: None

PATIENT
  Sex: Female

DRUGS (3)
  1. NUCALA [Suspect]
     Active Substance: MEPOLIZUMAB
     Indication: Pulmonary vasculitis
     Dosage: FREQUENCY : MONTHLY;?INJECT 3 PENS AS 3 SEPARATED INJECTION UNDER THE SKIN (SUBCUTANEOUS INJECTION)
     Route: 058
     Dates: start: 20220910
  2. CLOBETASOL LOT 0.05% [Concomitant]
  3. SYMBICORT AER 160-4.5 [Concomitant]

REACTIONS (2)
  - Chest pain [None]
  - Condition aggravated [None]
